FAERS Safety Report 8921351 (Version 1)
Quarter: 2012Q4

REPORT INFORMATION
  Report Type: 
  Country: NL (occurrence: NL)
  Receive Date: 20121122
  Receipt Date: 20121122
  Transmission Date: 20130627
  Serious: Yes (Life-Threatening)
  Sender: FDA-Public Use
  Company Number: NL-GLENMARK GENERICS INC.-2012GMK004369

PATIENT
  Age: 59 Year
  Sex: Male
  Weight: 78 kg

DRUGS (4)
  1. ROPINIROLE [Suspect]
     Indication: PARKINSON^S DISEASE
     Dosage: 2 mg, od
     Dates: start: 20110925, end: 20111013
  2. SYMMETREL [Concomitant]
     Indication: PRODUCT USED FOR UNKNOWN INDICATION
     Dosage: 100mg, bid
     Dates: start: 201001
  3. SINEMET [Concomitant]
     Indication: PRODUCT USED FOR UNKNOWN INDICATION
     Dosage: 1 DF, qid
     Dates: start: 201001
  4. MOVICOLON [Concomitant]
     Indication: PRODUCT USED FOR UNKNOWN INDICATION
     Dosage: 1 DF, od
     Dates: start: 200912

REACTIONS (2)
  - Cardiac disorder [Recovered/Resolved]
  - Therapeutic response unexpected with drug substitution [Recovered/Resolved]
